FAERS Safety Report 19666722 (Version 1)
Quarter: 2021Q3

REPORT INFORMATION
  Report Type: Spontaneous
  Country: US (occurrence: US)
  Receive Date: 20210806
  Receipt Date: 20210806
  Transmission Date: 20211014
  Serious: Yes (Death)
  Sender: FDA-Public Use
  Company Number: None

PATIENT
  Age: 68 Year
  Sex: Male
  Weight: 77.7 kg

DRUGS (10)
  1. BEVACIZUMAB?AWWB [Concomitant]
     Active Substance: BEVACIZUMAB-AWWB
     Dates: start: 20210802
  2. PALONOSETRON. [Concomitant]
     Active Substance: PALONOSETRON HYDROCHLORIDE
     Dates: start: 20210802
  3. BEVACIZUMAB?AWWB (MVASI) [Suspect]
     Active Substance: BEVACIZUMAB-AWWB
     Indication: ADENOCARCINOMA METASTATIC
     Dosage: ?          OTHER FREQUENCY:DAY OF TREATMENT;?
     Route: 042
     Dates: start: 20210802, end: 20210802
  4. FOSAPREPITANT [Concomitant]
     Active Substance: FOSAPREPITANT
     Dates: start: 20210802
  5. FAMOTIDINE. [Concomitant]
     Active Substance: FAMOTIDINE
     Dates: start: 20210802
  6. LEUCOVORIN. [Concomitant]
     Active Substance: LEUCOVORIN
     Dates: start: 20210802
  7. OXALIPLATIN. [Concomitant]
     Active Substance: OXALIPLATIN
     Dates: start: 20210802
  8. FLUOROURACIL. [Suspect]
     Active Substance: FLUOROURACIL
     Indication: ADENOCARCINOMA METASTATIC
     Dosage: ?          OTHER FREQUENCY:DAY OF TREATMENT;?
     Route: 042
  9. FLUOROURACIL. [Concomitant]
     Active Substance: FLUOROURACIL
     Dates: start: 20210802
  10. DEXAMETHASONE. [Concomitant]
     Active Substance: DEXAMETHASONE
     Dates: start: 20210802

REACTIONS (2)
  - Wheelchair user [None]
  - Death [None]

NARRATIVE: CASE EVENT DATE: 20210802
